FAERS Safety Report 4717012-0 (Version None)
Quarter: 2005Q3

REPORT INFORMATION
  Report Type: 
  Country: None (occurrence: None)
  Receive Date: 20050719
  Receipt Date: 20050708
  Transmission Date: 20060218
  Serious: Yes (Hospitalization)
  Sender: FDA-Public Use
  Company Number: FR-JNJFOC-20050702685

PATIENT
  Age: 84 Year
  Sex: Female

DRUGS (7)
  1. TOPALGIC [Suspect]
     Indication: DRUG USE FOR UNKNOWN INDICATION
     Route: 048
  2. LYSANXIA [Suspect]
     Indication: DRUG USE FOR UNKNOWN INDICATION
     Route: 048
  3. FONZYLANE [Concomitant]
     Route: 048
  4. RAMIPRIL [Concomitant]
     Route: 048
  5. HEMIDIGOXINE [Concomitant]
     Route: 048
  6. PLAVIX [Concomitant]
     Route: 048
  7. LASIX [Concomitant]
     Route: 048

REACTIONS (2)
  - DEPRESSED LEVEL OF CONSCIOUSNESS [None]
  - SOMNOLENCE [None]
